FAERS Safety Report 11227967 (Version 2)
Quarter: 2015Q3

REPORT INFORMATION
  Report Type: Report from Study
  Country: JP (occurrence: JP)
  Receive Date: 20150630
  Receipt Date: 20150721
  Transmission Date: 20151125
  Serious: Yes (Hospitalization)
  Sender: FDA-Public Use
  Company Number: JP-ASTRAZENECA-2015SE63640

PATIENT
  Age: 34 Year
  Sex: Male

DRUGS (17)
  1. CRESTOR [Suspect]
     Active Substance: ROSUVASTATIN CALCIUM
     Indication: HYPERCHOLESTEROLAEMIA
     Dosage: 7.5 MG; NUMBER OF SEPARATE DOSAGES UNKNOWN
     Route: 048
     Dates: start: 20130509, end: 20130710
  2. CRESTOR [Suspect]
     Active Substance: ROSUVASTATIN CALCIUM
     Indication: HYPERCHOLESTEROLAEMIA
     Dosage: 5 MG; NUMBER OF SEPARATE DOSAGES UNKNOWN
     Route: 048
     Dates: start: 20130308, end: 20130508
  3. DIOVAN [Concomitant]
     Active Substance: VALSARTAN
     Indication: HYPERTENSION
     Dosage: 40 MG; NUMBER OF SEPARATE DOSAGES UNKNOWN
     Route: 065
     Dates: start: 20141211
  4. METGLUCO [Concomitant]
     Active Substance: METFORMIN HYDROCHLORIDE
     Indication: DIABETES MELLITUS
     Dosage: 500 MG; NUMBER OF SEPARATE DOSAGES UNKNOWN
     Route: 065
     Dates: start: 20130111, end: 20130307
  5. METGLUCO [Concomitant]
     Active Substance: METFORMIN HYDROCHLORIDE
     Indication: DIABETES MELLITUS
     Dosage: 750 MG; NUMBER OF SEPARATE DOSAGES UNKNOWN
     Route: 065
     Dates: start: 20110727, end: 20130110
  6. LATANOPROST. [Concomitant]
     Active Substance: LATANOPROST
     Dosage: 2 DF; NUMBER OF SEPARATE DOSAGES UNKNOWN
     Route: 065
     Dates: start: 20120201
  7. CRESTOR [Suspect]
     Active Substance: ROSUVASTATIN CALCIUM
     Indication: HYPERCHOLESTEROLAEMIA
     Dosage: 7.5 MG; NUMBER OF SEPARATE DOSAGES UNKNOWN
     Route: 048
     Dates: start: 20130711
  8. GLACTIV [Concomitant]
     Active Substance: SITAGLIPTIN
     Indication: DIABETES MELLITUS
     Dosage: 50 MG; NUMBER OF SEPARATE DOSAGES UNKNOWN
     Route: 065
     Dates: start: 20130307, end: 20131218
  9. TANATRIL [Concomitant]
     Active Substance: IMIDAPRIL
     Indication: HYPERTENSION
     Dosage: 2.5 MG; NUMBER OF SEPARATE DOSAGES UNKNOWN
     Route: 065
     Dates: start: 20101106, end: 20140609
  10. AMLODIN OD [Concomitant]
     Active Substance: AMLODIPINE BESYLATE
     Indication: HYPERTENSION
     Dosage: 2.5 MG; NUMBER OF SEPARATE DOSAGES UNKNOWN
     Route: 065
     Dates: start: 20131219
  11. CRESTOR [Suspect]
     Active Substance: ROSUVASTATIN CALCIUM
     Indication: HYPERCHOLESTEROLAEMIA
     Route: 048
     Dates: start: 20121114, end: 20130307
  12. NESP [Concomitant]
     Active Substance: DARBEPOETIN ALFA
     Dosage: 30 UG; NUMBER OF SEPARATE DOSAGES UNKNOWN
     Route: 065
     Dates: start: 20131209
  13. GLACTIV [Concomitant]
     Active Substance: SITAGLIPTIN
     Indication: DIABETES MELLITUS
     Dosage: 25 MG; NUMBER OF SEPARATE DOSAGES UNKNOWN
     Route: 065
     Dates: start: 20131219, end: 20140728
  14. DIART [Concomitant]
     Active Substance: AZOSEMIDE
     Indication: HYPERTENSION
     Dosage: 30 MG; NUMBER OF SEPARATE DOSAGES UNKNOWN
     Route: 065
     Dates: start: 20131209
  15. GLUCOBAY [Concomitant]
     Active Substance: ACARBOSE
     Indication: DIABETES MELLITUS
     Dosage: 150 MG; NUMBER OF SEPARATE DOSAGES UNKNOWN
     Route: 065
     Dates: start: 20100408, end: 20141003
  16. TRAZENTA [Concomitant]
     Active Substance: LINAGLIPTIN
     Indication: DIABETES MELLITUS
     Dosage: 5 MG; NUMBER OF SEPARATE DOSAGES UNKNOWN
     Route: 065
     Dates: start: 20141007
  17. COSOPT [Concomitant]
     Active Substance: DORZOLAMIDE HYDROCHLORIDE\TIMOLOL MALEATE
     Dosage: 2 DF; NUMBER OF SEPARATE DOSAGES UNKNOWN
     Route: 065
     Dates: start: 20111109

REACTIONS (1)
  - Diabetic nephropathy [Recovering/Resolving]

NARRATIVE: CASE EVENT DATE: 20141003
